FAERS Safety Report 8515533-6 (Version None)
Quarter: 2012Q3

REPORT INFORMATION
  Report Type: 
  Country: None (occurrence: None)
  Receive Date: 20120717
  Receipt Date: 20120706
  Transmission Date: 20120928
  Serious: Yes (Hospitalization)
  Sender: FDA-Public Use
  Company Number: FR-BRISTOL-MYERS SQUIBB COMPANY-16753444

PATIENT
  Age: 91 Year
  Sex: Female

DRUGS (2)
  1. COUMADIN [Suspect]
     Dosage: 2/D FROM 11APR-15APR2012, 1/D FROM 15APR-18APR2012
     Route: 048
     Dates: start: 20120411, end: 20120418
  2. CALCIPARINE [Suspect]
     Dosage: 1DF: 5000 IU/0.2 ML
     Route: 058
     Dates: start: 20120411, end: 20120418

REACTIONS (2)
  - ANAEMIA [None]
  - HAEMATOMA [None]
